FAERS Safety Report 8294721-0 (Version None)
Quarter: 2012Q2

REPORT INFORMATION
  Report Type: 
  Country: None (occurrence: None)
  Receive Date: 20120418
  Receipt Date: 20120411
  Transmission Date: 20120825
  Serious: Yes (Hospitalization)
  Sender: FDA-Public Use
  Company Number: US-AMGEN-USASP2012023043

PATIENT
  Age: 62 Year
  Sex: Male

DRUGS (2)
  1. ENBREL [Suspect]
     Indication: RHEUMATOID ARTHRITIS
     Dosage: 50 MG, QWK
     Dates: start: 20021221
  2. METHOTREXATE [Concomitant]
     Dosage: UNK

REACTIONS (8)
  - UPPER LIMB FRACTURE [None]
  - CLAVICLE FRACTURE [None]
  - HAEMORRHAGIC DIATHESIS [None]
  - ROAD TRAFFIC ACCIDENT [None]
  - RHEUMATOID ARTHRITIS [None]
  - SKIN ATROPHY [None]
  - TIBIA FRACTURE [None]
  - HAEMORRHAGE INTRACRANIAL [None]
